FAERS Safety Report 4713186-6 (Version None)
Quarter: 2005Q3

REPORT INFORMATION
  Report Type: 
  Country: None (occurrence: None)
  Receive Date: 20050701
  Receipt Date: 20040527
  Transmission Date: 20060218
  Serious: Yes (Other)
  Sender: FDA-Public Use
  Company Number: USA-2002-002403

PATIENT
  Age: 40 Year
  Sex: Female
  Weight: 77.6 kg

DRUGS (1)
  1. YASMIN [Suspect]
     Indication: ORAL CONTRACEPTION
     Dosage: 1 TAB(S), 1X/DAY, ORAL
     Route: 048
     Dates: start: 20020227, end: 20020802

REACTIONS (2)
  - BREAST DISCOLOURATION [None]
  - VENOUS THROMBOSIS LIMB [None]
